FAERS Safety Report 21281027 (Version 1)
Quarter: 2022Q3

REPORT INFORMATION
  Report Type: Spontaneous
  Country: KE (occurrence: KE)
  Receive Date: 20220901
  Receipt Date: 20220901
  Transmission Date: 20221026
  Serious: Yes (Other)
  Sender: FDA-Public Use
  Company Number: KE-SUN PHARMACEUTICAL INDUSTRIES LTD-2022RR-352753

PATIENT
  Sex: Male
  Weight: 1.32 kg

DRUGS (4)
  1. ASPIRIN [Suspect]
     Active Substance: ASPIRIN
     Indication: Maternal therapy to enhance foetal lung maturity
     Dosage: UNK
     Route: 065
  2. METHYLDOPA [Suspect]
     Active Substance: METHYLDOPA
     Indication: Maternal therapy to enhance foetal lung maturity
     Dosage: UNK
     Route: 065
  3. DEXAMETHASONE [Suspect]
     Active Substance: DEXAMETHASONE
     Indication: Maternal therapy to enhance foetal lung maturity
     Dosage: UNK
     Route: 065
  4. DYDROGESTERONE [Suspect]
     Active Substance: DYDROGESTERONE
     Indication: Maternal therapy to enhance foetal lung maturity
     Dosage: UNK
     Route: 065

REACTIONS (3)
  - Premature baby [Unknown]
  - Exposure during pregnancy [Unknown]
  - Low birth weight baby [Unknown]
